FAERS Safety Report 8259323-0 (Version None)
Quarter: 2012Q2

REPORT INFORMATION
  Report Type: 
  Country: None (occurrence: None)
  Receive Date: 20120404
  Receipt Date: 20120327
  Transmission Date: 20120825
  Serious: Yes (Other)
  Sender: FDA-Public Use
  Company Number: US-US-EMD SERONO, INC.-7122695

PATIENT
  Sex: Male

DRUGS (2)
  1. UNSPECIFIED PAIN MEDICATION [Concomitant]
     Indication: NEURALGIA
  2. REBIF [Suspect]
     Indication: MULTIPLE SCLEROSIS
     Route: 058
     Dates: start: 20110801

REACTIONS (2)
  - CORNEAL PERFORATION [None]
  - INJECTION SITE PAIN [None]
